FAERS Safety Report 6644571-3 (Version None)
Quarter: 2010Q1

REPORT INFORMATION
  Report Type: 
  Country: None (occurrence: None)
  Receive Date: 20100319
  Receipt Date: 20100319
  Transmission Date: 20100710
  Serious: No
  Sender: FDA-Public Use
  Company Number: None

PATIENT
  Sex: Female

DRUGS (3)
  1. ACTOS [Suspect]
  2. LANTUS [Concomitant]
  3. NOVOLOG [Concomitant]

REACTIONS (11)
  - ANAEMIA [None]
  - BLISTER [None]
  - BLOOD GLUCOSE DECREASED [None]
  - BLOOD GLUCOSE INCREASED [None]
  - DYSURIA [None]
  - FLUID RETENTION [None]
  - HYPOPHAGIA [None]
  - OEDEMA PERIPHERAL [None]
  - RENAL IMPAIRMENT [None]
  - RETCHING [None]
  - WEIGHT DECREASED [None]
